FAERS Safety Report 7705244-9 (Version None)
Quarter: 2011Q3

REPORT INFORMATION
  Report Type: 
  Country: None (occurrence: None)
  Receive Date: 20110818
  Receipt Date: 20110802
  Transmission Date: 20111222
  Serious: Yes (Death, Life-Threatening, Hospitalization, Other)
  Sender: FDA-Public Use
  Company Number: 2011MA010842

PATIENT
  Age: 58 Year
  Sex: Female

DRUGS (7)
  1. INSULIN [Suspect]
     Indication: DIABETES MELLITUS
  2. ASPIRIN [Suspect]
  3. AMITRIPTYLINE HCL [Suspect]
     Dosage: 25 MG; BID
  4. CITALOPRAM HYDROBROMIDE [Suspect]
     Dosage: 20 MG; QD
  5. METFORMIN HCL [Suspect]
     Indication: DIABETES MELLITUS
  6. SIMVASTATIN [Suspect]
     Indication: HYPERCHOLESTEROLAEMIA
     Dosage: 20 MG; QD
  7. BENDROFLUMETHIAZIDE (BENDROFLUMETHIAZIDE) [Suspect]

REACTIONS (29)
  - ATAXIA [None]
  - DISSEMINATED INTRAVASCULAR COAGULATION [None]
  - NUCLEAR MAGNETIC RESONANCE IMAGING BRAIN ABNORMAL [None]
  - WOUND HAEMORRHAGE [None]
  - CEREBELLAR ATROPHY [None]
  - NYSTAGMUS [None]
  - MULTI-ORGAN FAILURE [None]
  - CEREBRAL VENTRICLE DILATATION [None]
  - THALAMIC INFARCTION [None]
  - BIOPSY BRAIN ABNORMAL [None]
  - COMA [None]
  - HEAD INJURY [None]
  - BACTERIAL TEST POSITIVE [None]
  - RHABDOMYOLYSIS [None]
  - BLOOD CREATININE INCREASED [None]
  - NO THERAPEUTIC RESPONSE [None]
  - CSF PROTEIN INCREASED [None]
  - SEROTONIN SYNDROME [None]
  - DIZZINESS [None]
  - CONFUSIONAL STATE [None]
  - MUSCLE TWITCHING [None]
  - NERVOUS SYSTEM DISORDER [None]
  - HEART RATE INCREASED [None]
  - BRAIN SCAN ABNORMAL [None]
  - GLIOSIS [None]
  - APRAXIA [None]
  - BODY TEMPERATURE INCREASED [None]
  - MUSCLE NECROSIS [None]
  - CENTRAL NERVOUS SYSTEM LESION [None]
